FAERS Safety Report 5889227-X (Version None)
Quarter: 2008Q3

REPORT INFORMATION
  Report Type: 
  Country: None (occurrence: None)
  Receive Date: 20080919
  Receipt Date: 20080910
  Transmission Date: 20090109
  Serious: Yes (Hospitalization)
  Sender: FDA-Public Use
  Company Number: DE-AMGEN-US276751

PATIENT
  Sex: Male
  Weight: 92 kg

DRUGS (7)
  1. ENBREL [Suspect]
     Indication: PSORIASIS
     Route: 058
     Dates: start: 20071206, end: 20080412
  2. ENBREL [Suspect]
     Indication: HYPERTENSION
  3. ACETYL SALICYLIC ACID COMPOUND TAB [Concomitant]
     Indication: MYOCARDIAL ISCHAEMIA
     Route: 048
     Dates: start: 19940601
  4. DOVOBET [Concomitant]
     Indication: PSORIASIS
     Dosage: ONE TIME DAILY
     Route: 061
     Dates: start: 20070701
  5. NEXIUM [Concomitant]
     Route: 048
     Dates: start: 20060601
  6. BLOPRESS [Concomitant]
     Indication: MYOCARDIAL ISCHAEMIA
     Route: 048
     Dates: start: 19940601
  7. HYDROCHLOROTHIAZIDE [Concomitant]
     Route: 065

REACTIONS (3)
  - ANAEMIA [None]
  - GASTROINTESTINAL HAEMORRHAGE [None]
  - VARICES OESOPHAGEAL [None]
